FAERS Safety Report 23550547 (Version 6)
Quarter: 2024Q3

REPORT INFORMATION
  Report Type: Spontaneous
  Country: AU (occurrence: AU)
  Receive Date: 20240221
  Receipt Date: 20240703
  Transmission Date: 20241016
  Serious: Yes (Other)
  Sender: NOVARTIS
  Company Number: AU-002147023-NVSC2023AU255637

PATIENT
  Sex: Female
  Weight: 138 kg

DRUGS (3)
  1. KESIMPTA [Suspect]
     Active Substance: OFATUMUMAB
     Indication: Product used for unknown indication
     Dosage: 20 MG, QMO (EVERY 30 DAYS)
     Route: 058
     Dates: start: 2023
  2. METFORMIN HYDROCHLORIDE [Suspect]
     Active Substance: METFORMIN HYDROCHLORIDE
     Indication: Product used for unknown indication
     Dosage: UNK
     Route: 048
  3. METFORMIN HYDROCHLORIDE [Suspect]
     Active Substance: METFORMIN HYDROCHLORIDE
     Dosage: 100 MG
     Route: 048
     Dates: start: 1994

REACTIONS (14)
  - Paralysis [Unknown]
  - COVID-19 [Unknown]
  - Feeling cold [Unknown]
  - Nervousness [Unknown]
  - Dry skin [Unknown]
  - Pruritus [Unknown]
  - Nail ridging [Unknown]
  - Hypoaesthesia [Unknown]
  - Alopecia [Unknown]
  - Paraesthesia [Unknown]
  - Diarrhoea [Unknown]
  - Anal incontinence [Unknown]
  - Headache [Unknown]
  - Gait inability [Unknown]
